FAERS Safety Report 9559779 (Version 3)
Quarter: 2013Q4

REPORT INFORMATION
  Report Type: Spontaneous
  Country: US (occurrence: US)
  Receive Date: 20130927
  Receipt Date: 20131011
  Transmission Date: 20140711
  Serious: No
  Sender: FDA-Public Use
  Company Number: US-009507513-1309USA012107

PATIENT
  Age: 31 Year
  Sex: Female
  Weight: 79.37 kg

DRUGS (1)
  1. CLARITIN REDITABS [Suspect]
     Indication: HYPERSENSITIVITY
     Dosage: UNK, QD
     Route: 048
     Dates: start: 201309, end: 201309

REACTIONS (2)
  - Headache [Recovering/Resolving]
  - Drug ineffective [Unknown]
